FAERS Safety Report 5238380-X (Version None)
Quarter: 2007Q1

REPORT INFORMATION
  Report Type: 
  Country: None (occurrence: None)
  Receive Date: 20070209
  Receipt Date: 20070201
  Transmission Date: 20070707
  Serious: Yes (Death)
  Sender: FDA-Public Use
  Company Number: 2007-00551

PATIENT
  Age: 43 Year

DRUGS (1)
  1. DIPHENHYDRAMINE (WATSON LABORATORIES) CAPSULE [Suspect]

REACTIONS (1)
  - DEATH [None]
